FAERS Safety Report 7945852-3 (Version None)
Quarter: 2011Q4

REPORT INFORMATION
  Report Type: 
  Country: None (occurrence: None)
  Receive Date: 20111125
  Receipt Date: 20111110
  Transmission Date: 20120403
  Serious: Yes (Other)
  Sender: FDA-Public Use
  Company Number: 1000025096

PATIENT
  Age: 64 Year
  Sex: Male

DRUGS (13)
  1. PANTOSIN (PANTHETHINE) (PANTETHINE) [Concomitant]
  2. MERCAZOLE (THIAMAZOLE) (THIAMAZOLE) [Concomitant]
  3. SELENCIA-R (VALPROATE SODIUM) (VALPROATE SODIUM) [Concomitant]
  4. YOKUKAN-SAN (HERBAL EXTRACT NOS) (HERBAL EXTRACT NOS) [Concomitant]
  5. MEMANTINE HYDROCHLORIDE [Suspect]
     Indication: DEMENTIA ALZHEIMER'S TYPE
     Dosage: 5 MG (5 MG, 1 IN 1 D) ORAL
     Route: 048
     Dates: start: 20110718, end: 20110724
  6. GASCON (DIMETICONE) (DIMETICONE) [Concomitant]
  7. FLIVAS (NAFTOPIDIL) (NAFTOPIDIL) [Concomitant]
  8. NELUROLEN (NITRAZEPAM) [Concomitant]
  9. MEMANTINE HYDROCHLORIDE [Suspect]
     Indication: DEMENTIA ALZHEIMER'S TYPE
     Dosage: 20 MG (20 MG, 1 IN 1 D) ORAL
     Route: 048
     Dates: start: 20110808, end: 20111004
  10. SEROQUEL (QUIETIAPINE FUMARATE) (QUETIAPINE FUMARATE) [Concomitant]
  11. UNDEPRE (TRAZODONE HYDROCHLORIDE) (TRAZODONE) [Concomitant]
  12. RISPERIDONE [Concomitant]
  13. EVIPROSTAT (SODIUM TAUROCHOLATE, MANGANESE CHLORIDE, TRITICUM AESTIVUM [Concomitant]

REACTIONS (7)
  - NOCTURIA [None]
  - RESTLESSNESS [None]
  - PYELONEPHRITIS ACUTE [None]
  - HAEMATOCRIT DECREASED [None]
  - HAEMOGLOBIN DECREASED [None]
  - ABASIA [None]
  - PNEUMONIA [None]
